FAERS Safety Report 25488006 (Version 1)
Quarter: 2025Q2

REPORT INFORMATION
  Report Type: Spontaneous
  Country: CN (occurrence: CN)
  Receive Date: 20250627
  Receipt Date: 20250627
  Transmission Date: 20250717
  Serious: Yes (Hospitalization, Other)
  Sender: BEIGENE
  Company Number: CN-BEIGENE-BGN-2025-009936

PATIENT
  Age: 58 Year
  Weight: 80 kg

DRUGS (2)
  1. TISLELIZUMAB [Suspect]
     Active Substance: TISLELIZUMAB
     Indication: Bladder cancer
     Dosage: 200 MILLIGRAM, Q3WK, D1
  2. DISITAMAB VEDOTIN [Concomitant]
     Active Substance: DISITAMAB VEDOTIN
     Indication: Bladder cancer
     Dosage: 180 MILLIGRAM, Q3WK, D1

REACTIONS (2)
  - Immune-mediated hepatitis [Not Recovered/Not Resolved]
  - Hepatitis B [Not Recovered/Not Resolved]
